FAERS Safety Report 13491800 (Version 1)
Quarter: 2017Q2

REPORT INFORMATION
  Report Type: Spontaneous
  Country: US (occurrence: US)
  Receive Date: 20170427
  Receipt Date: 20170427
  Transmission Date: 20170830
  Serious: Yes (Other)
  Sender: FDA-Public Use
  Company Number: US-TEVA-764103ACC

PATIENT
  Age: 23 Year
  Sex: Female

DRUGS (2)
  1. NAPROSYN [Concomitant]
     Active Substance: NAPROXEN
  2. PARAGARD T 380A [Suspect]
     Active Substance: COPPER
     Dates: end: 20161109

REACTIONS (1)
  - Device dislocation [Recovered/Resolved]

NARRATIVE: CASE EVENT DATE: 20161109
